FAERS Safety Report 13765334 (Version 2)
Quarter: 2017Q3

REPORT INFORMATION
  Report Type: Spontaneous
  Country: US (occurrence: US)
  Receive Date: 20170718
  Receipt Date: 20170823
  Transmission Date: 20171127
  Serious: Yes (Hospitalization, Other)
  Sender: FDA-Public Use
  Company Number: US-ALEXION PHARMACEUTICALS INC.-A201707758

PATIENT
  Sex: Male

DRUGS (1)
  1. SOLIRIS [Suspect]
     Active Substance: ECULIZUMAB
     Indication: HAEMOLYTIC URAEMIC SYNDROME
     Dosage: 1200 MG, Q2W
     Route: 042
     Dates: end: 20170706

REACTIONS (12)
  - Fall [Unknown]
  - Headache [Unknown]
  - Head injury [Unknown]
  - Blood pressure increased [Unknown]
  - Chest discomfort [Unknown]
  - Loss of consciousness [Unknown]
  - Cough [Unknown]
  - Eye movement disorder [Unknown]
  - Seizure [Unknown]
  - Incontinence [Unknown]
  - Erythema [Unknown]
  - Presyncope [Unknown]

NARRATIVE: CASE EVENT DATE: 20170708
